FAERS Safety Report 4398148-3 (Version None)
Quarter: 2004Q3

REPORT INFORMATION
  Report Type: 
  Country: None (occurrence: None)
  Receive Date: 20040715
  Receipt Date: 20040323
  Transmission Date: 20050211
  Serious: Yes (Hospitalization)
  Sender: FDA-Public Use
  Company Number: GB-BRISTOL-MYERS SQUIBB COMPANY-12542130

PATIENT
  Age: 35 Year
  Sex: Male
  Weight: 82 kg

DRUGS (6)
  1. REYATAZ [Suspect]
     Indication: HIV INFECTION
     Route: 048
     Dates: start: 20040210
  2. EFAVIRENZ [Concomitant]
     Indication: HIV INFECTION
     Route: 048
     Dates: start: 20010814
  3. STAVUDINE [Concomitant]
     Indication: HIV INFECTION
     Route: 048
     Dates: start: 20010814
  4. KALETRA [Concomitant]
     Indication: HIV INFECTION
     Dosage: DOSAGE FORM: CAPSULE
     Route: 048
     Dates: start: 20010814, end: 20040210
  5. SUSTANON [Concomitant]
     Indication: HYPOGONADISM
     Route: 048
     Dates: start: 20020709
  6. FENOFIBRATE [Concomitant]
     Indication: HYPERLIPIDAEMIA
     Route: 048
     Dates: start: 20020218

REACTIONS (4)
  - ATRIOVENTRICULAR BLOCK FIRST DEGREE [None]
  - CHEST PAIN [None]
  - ELECTROCARDIOGRAM CHANGE [None]
  - MYOCARDIAL ISCHAEMIA [None]
